FAERS Safety Report 5579191-5 (Version None)
Quarter: 2008Q1

REPORT INFORMATION
  Report Type: 
  Country: None (occurrence: None)
  Receive Date: 20080102
  Receipt Date: 20071221
  Transmission Date: 20080703
  Serious: Yes (Hospitalization)
  Sender: FDA-Public Use
  Company Number: B0496199A

PATIENT
  Age: 84 Year
  Sex: Female
  Weight: 43 kg

DRUGS (11)
  1. ARIXTRA [Suspect]
     Indication: THROMBOSIS PROPHYLAXIS
     Dosage: 2.5MG PER DAY
     Route: 058
     Dates: start: 20071108, end: 20071115
  2. VOLTAREN [Suspect]
     Indication: PAIN
     Dosage: 25MG PER DAY
     Route: 054
     Dates: start: 20071106, end: 20071108
  3. MOHRUS TAPE [Suspect]
     Indication: PAIN
     Route: 062
     Dates: start: 20071105
  4. GLYCERIN [Concomitant]
     Indication: PREOPERATIVE CARE
     Dosage: 120ML PER DAY
     Route: 054
     Dates: start: 20071105, end: 20071105
  5. MYSLEE [Concomitant]
     Indication: PREOPERATIVE CARE
     Dosage: 10MG PER DAY
     Route: 048
     Dates: start: 20071105, end: 20071105
  6. ADJUST A [Concomitant]
     Indication: PREOPERATIVE CARE
     Dosage: 40MG PER DAY
     Route: 048
     Dates: start: 20071105, end: 20071105
  7. AMLODIN [Concomitant]
     Indication: HYPERTENSION
     Dosage: 5MG PER DAY
     Route: 048
     Dates: start: 20071101
  8. CEFAMEZIN [Concomitant]
     Indication: PROPHYLAXIS
     Dosage: 2G PER DAY
     Route: 042
     Dates: start: 20071106, end: 20071108
  9. RHYTHMY [Concomitant]
     Indication: INSOMNIA
     Dosage: 2MG PER DAY
     Route: 048
     Dates: start: 20071107
  10. FRANDOL S [Concomitant]
     Indication: HYPERTENSION
     Route: 062
     Dates: start: 20071115, end: 20071115
  11. GASTER [Concomitant]
     Indication: STOMACH DISCOMFORT
     Route: 065

REACTIONS (9)
  - ANAEMIA [None]
  - EATING DISORDER [None]
  - GASTRIC ULCER [None]
  - GASTRIC ULCER HAEMORRHAGE [None]
  - HAEMATEMESIS [None]
  - MELAENA [None]
  - METAPLASIA [None]
  - RESTLESSNESS [None]
  - STOMACH DISCOMFORT [None]
